FAERS Safety Report 24397928 (Version 2)
Quarter: 2024Q4

REPORT INFORMATION
  Report Type: Spontaneous
  Country: US (occurrence: US)
  Receive Date: 20241004
  Receipt Date: 20241017
  Transmission Date: 20250115
  Serious: No
  Sender: PFIZER
  Company Number: US-PFIZER INC-202400268257

PATIENT
  Age: 79 Year
  Sex: Male

DRUGS (2)
  1. PAXLOVID [Suspect]
     Active Substance: NIRMATRELVIR\RITONAVIR
     Indication: COVID-19 treatment
     Dosage: 1 TABLET IN THE MORNING AND 1 TABLET IN THE NIGHT
     Dates: start: 20240926, end: 20240930
  2. PAXLOVID [Suspect]
     Active Substance: NIRMATRELVIR\RITONAVIR
     Dosage: 1 TABLET IN THE MORNING AND 1 TABLET IN THE NIGHT
     Dates: start: 20240926, end: 20240930

REACTIONS (3)
  - Therapeutic product effect incomplete [Unknown]
  - Incorrect dose administered [Unknown]
  - Expired product administered [Unknown]

NARRATIVE: CASE EVENT DATE: 20240101
